FAERS Safety Report 9061597 (Version 1)
Quarter: 2013Q1

REPORT INFORMATION
  Report Type: Spontaneous
  Country: TH (occurrence: TH)
  Receive Date: 20130204
  Receipt Date: 20130204
  Transmission Date: 20140127
  Serious: Yes (Death)
  Sender: FDA-Public Use
  Company Number: PHHY2013TH009469

PATIENT
  Age: 73 Year
  Sex: Male

DRUGS (1)
  1. ZOMETA [Suspect]
     Indication: METASTASES TO BONE
     Dosage: 4 MG, EVERY 2 MONTHS
     Route: 041

REACTIONS (8)
  - Sepsis [Fatal]
  - Colon cancer [Fatal]
  - Metastases to kidney [Fatal]
  - Metastases to bone [Fatal]
  - Renal failure [Fatal]
  - Weight decreased [Unknown]
  - Hypophagia [Unknown]
  - Hypoaesthesia [Unknown]
